FAERS Safety Report 18706414 (Version 1)
Quarter: 2021Q1

REPORT INFORMATION
  Report Type: Report from Study
  Country: BR (occurrence: BR)
  Receive Date: 20210106
  Receipt Date: 20210106
  Transmission Date: 20210419
  Serious: Yes (Other)
  Sender: FDA-Public Use
  Company Number: BR-TAKEDA-BR202005281

PATIENT

DRUGS (2)
  1. HEMO?8R [Suspect]
     Active Substance: ANTIHEMOPHILIC FACTOR, HUMAN RECOMBINANT
     Dosage: 1500 INTERNATIONAL UNIT, Q3WEEKS
     Route: 042
     Dates: start: 20200207
  2. HEMO?8R [Suspect]
     Active Substance: ANTIHEMOPHILIC FACTOR, HUMAN RECOMBINANT
     Indication: FACTOR VIII DEFICIENCY
     Dosage: 1500 INTERNATIONAL UNIT, Q3WEEKS
     Route: 042
     Dates: start: 20000509

REACTIONS (4)
  - Arthralgia [Unknown]
  - Product dose omission issue [Unknown]
  - Muscle atrophy [Unknown]
  - Pyrexia [Unknown]
